FAERS Safety Report 5097145-2 (Version None)
Quarter: 2006Q3

REPORT INFORMATION
  Report Type: 
  Country: None (occurrence: None)
  Receive Date: 20060901
  Receipt Date: 20060823
  Transmission Date: 20061208
  Serious: Yes (Hospitalization)
  Sender: FDA-Public Use
  Company Number: 163-C5013-06081186

PATIENT

DRUGS (2)
  1. REVLIMID [Suspect]
     Indication: MULTIPLE MYELOMA
     Dosage: DAILY, ORAL
     Route: 048
     Dates: start: 20060303
  2. DEXAMETHASONE TAB [Suspect]
     Indication: MULTIPLE MYELOMA
     Dosage: 40 MG, DAILY, ORAL
     Route: 048
     Dates: start: 20060303

REACTIONS (1)
  - PHLEBITIS SUPERFICIAL [None]
